FAERS Safety Report 5873552-2 (Version None)
Quarter: 2008Q3

REPORT INFORMATION
  Report Type: 
  Country: None (occurrence: None)
  Receive Date: 20080908
  Receipt Date: 20080828
  Transmission Date: 20090109
  Serious: Yes (Hospitalization)
  Sender: FDA-Public Use
  Company Number: AU-AMGEN-US304704

PATIENT
  Age: 78 Year
  Sex: Female

DRUGS (5)
  1. NEULASTA [Suspect]
     Indication: DRUG USE FOR UNKNOWN INDICATION
     Route: 065
     Dates: start: 20080523
  2. DOCETAXEL [Suspect]
     Route: 065
     Dates: start: 20070524, end: 20080524
  3. DEXAMETHASONE TAB [Concomitant]
  4. ENOXAPARIN SODIUM [Concomitant]
  5. ZOLEDRONIC ACID [Concomitant]

REACTIONS (3)
  - DYSPNOEA [None]
  - LETHARGY [None]
  - PAIN [None]
